FAERS Safety Report 17554827 (Version 1)
Quarter: 2020Q1

REPORT INFORMATION
  Report Type: Spontaneous
  Country: IE (occurrence: IE)
  Receive Date: 20200318
  Receipt Date: 20200318
  Transmission Date: 20200409
  Serious: Yes (Death, Other)
  Sender: FDA-Public Use
  Company Number: IE-ROCHE-2394291

PATIENT
  Sex: Female

DRUGS (1)
  1. TECENTRIQ [Suspect]
     Active Substance: ATEZOLIZUMAB
     Indication: SMALL CELL LUNG CANCER
     Route: 042
     Dates: start: 20190826

REACTIONS (5)
  - Off label use [Unknown]
  - Intentional product use issue [Unknown]
  - Metastatic gastric cancer [Unknown]
  - Cytogenetic analysis abnormal [Unknown]
  - Death [Fatal]
